FAERS Safety Report 6585431-6 (Version None)
Quarter: 2010Q1

REPORT INFORMATION
  Report Type: 
  Country: None (occurrence: None)
  Receive Date: 20100217
  Receipt Date: 20100210
  Transmission Date: 20100710
  Serious: Yes (Hospitalization)
  Sender: FDA-Public Use
  Company Number: B0630111A

PATIENT
  Sex: Male
  Weight: 5 kg

DRUGS (1)
  1. ZANTAC [Suspect]
     Indication: ILL-DEFINED DISORDER
     Route: 065

REACTIONS (5)
  - HEPATITIS [None]
  - MALAISE [None]
  - MILK ALLERGY [None]
  - POOR WEIGHT GAIN NEONATAL [None]
  - TRANSAMINASES INCREASED [None]
